FAERS Safety Report 9913266 (Version 1)
Quarter: 2014Q1

REPORT INFORMATION
  Report Type: Spontaneous
  Country: US (occurrence: None)
  Receive Date: 20140214
  Receipt Date: 20140214
  Transmission Date: 20141002
  Serious: Yes (Death, Hospitalization)
  Sender: FDA-Public Use
  Company Number: AUR-APL-2014-01150

PATIENT
  Age: 28 Year
  Sex: Male

DRUGS (10)
  1. FLUOXETINE (FLUOXETINE) [Suspect]
     Indication: PRODUCT USED FOR UNKNOWN INDICATION
  2. LISINOPRIL (LISINOPRIL) [Suspect]
     Indication: PRODUCT USED FOR UNKNOWN INDICATION
  3. FLECAINIDE (FLECAINIDE) [Suspect]
     Indication: PRODUCT USED FOR UNKNOWN INDICATION
  4. CLONIDINE (CLONIDINE) [Suspect]
     Indication: PRODUCT USED FOR UNKNOWN INDICATION
  5. CLONAZEPAM (CLONAZEPAM) (CLONAZEPAM) [Suspect]
     Indication: PRODUCT USED FOR UNKNOWN INDICATION
  6. FUROSEMIDE [Suspect]
     Indication: PRODUCT USED FOR UNKNOWN INDICATION
  7. POTASSIUM CHLORIDE (POTASSIUM CHLORIDE) [Suspect]
     Indication: PRODUCT USED FOR UNKNOWN INDICATION
  8. COCAINE [Suspect]
     Indication: PRODUCT USED FOR UNKNOWN INDICATION
  9. ETHANOL [Suspect]
     Indication: PRODUCT USED FOR UNKNOWN INDICATION
  10. LORAZEPAM (LORAZEPAM) [Suspect]
     Indication: PRODUCT USED FOR UNKNOWN INDICATION

REACTIONS (15)
  - Completed suicide [None]
  - Intentional self-injury [None]
  - Respiratory arrest [None]
  - Cardiac arrest [None]
  - Toxicity to various agents [None]
  - Exposure via ingestion [None]
  - Unresponsive to stimuli [None]
  - Coma [None]
  - Status epilepticus [None]
  - Convulsion [None]
  - Blood glucose increased [None]
  - Cardiogenic shock [None]
  - Arrhythmia [None]
  - Compartment syndrome [None]
  - Toxicity to various agents [None]
